FAERS Safety Report 16117317 (Version 1)
Quarter: 2019Q1

REPORT INFORMATION
  Report Type: Spontaneous
  Country: US (occurrence: US)
  Receive Date: 20190221
  Receipt Date: 20190221
  Transmission Date: 20190418
  Serious: No
  Sender: FDA-Public Use
  Company Number: None

PATIENT
  Age: 52 Year
  Sex: Male

DRUGS (1)
  1. DULAGLUTIDE. [Suspect]
     Active Substance: DULAGLUTIDE
     Indication: DIABETES MELLITUS
     Dates: start: 20180716, end: 20181211

REACTIONS (5)
  - Abdominal pain [None]
  - Pancreatitis [None]
  - Vomiting [None]
  - Dyspepsia [None]
  - Diarrhoea [None]

NARRATIVE: CASE EVENT DATE: 20181211
